FAERS Safety Report 13817577 (Version 2)
Quarter: 2020Q1

REPORT INFORMATION
  Report Type: Spontaneous
  Country: FR (occurrence: FR)
  Receive Date: 20170731
  Receipt Date: 20200114
  Transmission Date: 20200409
  Serious: Yes (Disabling, Congenital Anomaly, Other)
  Sender: FDA-Public Use
  Company Number: FR-ABBVIE-17P-056-1960916-00

PATIENT
  Sex: Female

DRUGS (1)
  1. DEPAKINE CHRONO [Suspect]
     Active Substance: VALPROATE SODIUM
     Indication: MATERNAL EXPOSURE TIMING UNSPECIFIED
     Route: 064
     Dates: start: 20081116, end: 20090814

REACTIONS (47)
  - Visual impairment [Not Recovered/Not Resolved]
  - Talipes [Not Recovered/Not Resolved]
  - Neurodevelopmental disorder [Not Recovered/Not Resolved]
  - Developmental delay [Not Recovered/Not Resolved]
  - Ear disorder [Unknown]
  - Oropharyngeal discomfort [Unknown]
  - Sitting disability [Unknown]
  - Loss of consciousness [Unknown]
  - Hypermobility syndrome [Not Recovered/Not Resolved]
  - Salivary hypersecretion [Not Recovered/Not Resolved]
  - Tympanic membrane perforation [Unknown]
  - Fatigue [Unknown]
  - Disturbance in attention [Unknown]
  - Hypotonia [Not Recovered/Not Resolved]
  - Intellectual disability [Not Recovered/Not Resolved]
  - Communication disorder [Not Recovered/Not Resolved]
  - Psychomotor skills impaired [Unknown]
  - Gait disturbance [Unknown]
  - Motor developmental delay [Unknown]
  - Congenital myopia [Unknown]
  - Coordination abnormal [Unknown]
  - Sleep disorder [Not Recovered/Not Resolved]
  - Multiple congenital abnormalities [Not Recovered/Not Resolved]
  - Arnold-Chiari malformation [Not Recovered/Not Resolved]
  - Nasal disorder [Unknown]
  - Pulse abnormal [Unknown]
  - Disinhibition [Unknown]
  - Astigmatism [Unknown]
  - Cerebellar ataxia [Unknown]
  - Foetal exposure during pregnancy [Unknown]
  - Joint laxity [Unknown]
  - Dyspraxia [Unknown]
  - Fine motor skill dysfunction [Unknown]
  - Speech disorder developmental [Unknown]
  - Vertebrobasilar insufficiency [Unknown]
  - Cognitive disorder [Unknown]
  - Autism spectrum disorder [Unknown]
  - Autism spectrum disorder [Not Recovered/Not Resolved]
  - Abnormal behaviour [Unknown]
  - Strabismus congenital [Not Recovered/Not Resolved]
  - Ear infection [Recovered/Resolved]
  - Malaise [Not Recovered/Not Resolved]
  - Disability [Not Recovered/Not Resolved]
  - Social problem [Unknown]
  - Gastrooesophageal reflux disease [Unknown]
  - Balance disorder [Unknown]
  - Congenital scoliosis [Unknown]

NARRATIVE: CASE EVENT DATE: 2012
